FAERS Safety Report 10646566 (Version 2)
Quarter: 2015Q1

REPORT INFORMATION
  Report Type: Spontaneous
  Country: US (occurrence: US)
  Receive Date: 20141211
  Receipt Date: 20150116
  Transmission Date: 20150720
  Serious: Yes (Hospitalization)
  Sender: FDA-Public Use
  Company Number: US-BAYER-2014-182792

PATIENT
  Age: 22 Year
  Sex: Female
  Weight: 87.53 kg

DRUGS (2)
  1. ENALAPRIL [Concomitant]
     Active Substance: ENALAPRIL
     Indication: HYPERTENSION
     Dosage: UNK
     Dates: start: 200812
  2. MIRENA [Suspect]
     Active Substance: LEVONORGESTREL
     Indication: CONTRACEPTION
     Dosage: 20 MCG/24HR, CONT
     Route: 015
     Dates: start: 20081203, end: 20130510

REACTIONS (7)
  - Injury [None]
  - Device breakage [None]
  - Anxiety [None]
  - Uterine perforation [None]
  - Pain [None]
  - Depression [None]
  - Complication of device insertion [None]

NARRATIVE: CASE EVENT DATE: 20081203
